FAERS Safety Report 6059045-0 (Version None)
Quarter: 2009Q1

REPORT INFORMATION
  Report Type: 
  Country: None (occurrence: None)
  Receive Date: 20090130
  Receipt Date: 20090119
  Transmission Date: 20090719
  Serious: Yes (Other)
  Sender: FDA-Public Use
  Company Number: B0554797A

PATIENT
  Age: 45 Year
  Sex: Male

DRUGS (7)
  1. TRIZIVIR [Suspect]
     Indication: HIV INFECTION
     Dosage: 1TAB TWICE PER DAY
     Route: 048
     Dates: start: 20010101
  2. DEPAKENE [Suspect]
     Indication: EPILEPSY
     Dosage: 500MG THREE TIMES PER DAY
     Route: 048
     Dates: start: 20081030
  3. ALDACTONE [Concomitant]
  4. LASILIX [Concomitant]
  5. FORLAX [Concomitant]
  6. INIPOMP [Concomitant]
  7. FLUCONAZOLE [Concomitant]

REACTIONS (3)
  - ANAEMIA [None]
  - DRUG INTERACTION [None]
  - THROMBOCYTOPENIA [None]
